FAERS Safety Report 21706911 (Version 2)
Quarter: 2024Q2

REPORT INFORMATION
  Report Type: Report from Study
  Country: US (occurrence: US)
  Receive Date: 20221209
  Receipt Date: 20240401
  Transmission Date: 20240717
  Serious: No
  Sender: FDA-Public Use
  Company Number: US-ABBVIE-4193996

PATIENT
  Sex: Male

DRUGS (1)
  1. HUMIRA [Suspect]
     Active Substance: ADALIMUMAB
     Indication: Hidradenitis
     Dosage: CITRATE FREE, FORM STRENGTH: 40 MILLIGRAM
     Route: 058

REACTIONS (7)
  - Candida infection [Recovering/Resolving]
  - Sputum increased [Unknown]
  - Feeling abnormal [Unknown]
  - Respiratory tract congestion [Unknown]
  - Oropharyngeal pain [Unknown]
  - Headache [Unknown]
  - Tongue coated [Unknown]

NARRATIVE: CASE EVENT DATE: 20220101
